FAERS Safety Report 12174636 (Version 2)
Quarter: 2016Q2

REPORT INFORMATION
  Report Type: Spontaneous
  Country: BR (occurrence: BR)
  Receive Date: 20160312
  Receipt Date: 20160528
  Transmission Date: 20160815
  Serious: Yes (Hospitalization, Other)
  Sender: FDA-Public Use
  Company Number: BR-BRISTOL-MYERS SQUIBB COMPANY-BMS-2016-018576

PATIENT
  Sex: Female
  Weight: 58 kg

DRUGS (4)
  1. ELIQUIS [Suspect]
     Active Substance: APIXABAN
     Indication: PRODUCT USED FOR UNKNOWN INDICATION
     Dosage: 5 MG, QD
     Route: 048
     Dates: start: 201601
  2. ELIQUIS [Suspect]
     Active Substance: APIXABAN
     Dosage: 2.5 MG, BID
     Route: 048
     Dates: start: 201601
  3. CARVEDILOL. [Concomitant]
     Active Substance: CARVEDILOL
     Indication: PRODUCT USED FOR UNKNOWN INDICATION
     Dosage: 1 TAB, Q12H
     Route: 065
  4. ANCORON [Concomitant]
     Active Substance: AMIODARONE HYDROCHLORIDE
     Indication: ARRHYTHMIA
     Dosage: 200 MG, QD
     Route: 065

REACTIONS (2)
  - Heart valve operation [Unknown]
  - Off label use [Unknown]
